FAERS Safety Report 24567933 (Version 2)
Quarter: 2024Q4

REPORT INFORMATION
  Report Type: Spontaneous
  Country: DE (occurrence: DE)
  Receive Date: 20241031
  Receipt Date: 20241107
  Transmission Date: 20250114
  Serious: Yes (Hospitalization, Disabling)
  Sender: SANDOZ
  Company Number: DE-009507513-2410DEU009588

PATIENT
  Sex: Female
  Weight: 84 kg

DRUGS (3)
  1. CARBOPLATIN [Suspect]
     Active Substance: CARBOPLATIN
     Indication: Non-small cell lung cancer
     Dosage: 540 MG
     Route: 065
     Dates: start: 20231107
  2. PEMETREXED [Suspect]
     Active Substance: PEMETREXED
     Indication: Non-small cell lung cancer
     Dosage: 900 MG
     Route: 065
     Dates: start: 20231107
  3. PEMBROLIZUMAB [Suspect]
     Active Substance: PEMBROLIZUMAB
     Indication: Non-small cell lung cancer
     Dosage: 200 MG
     Route: 065
     Dates: start: 20231106, end: 20240108

REACTIONS (1)
  - Immune-mediated nephritis [Recovered/Resolved]

NARRATIVE: CASE EVENT DATE: 20240109
